FAERS Safety Report 5452816-0 (Version None)
Quarter: 2007Q3

REPORT INFORMATION
  Report Type: 
  Country: None (occurrence: None)
  Receive Date: 20070914
  Receipt Date: 20070906
  Transmission Date: 20080115
  Serious: Yes (Hospitalization)
  Sender: FDA-Public Use
  Company Number: US-ELI_LILLY_AND_COMPANY-US200708004355

PATIENT
  Age: 62 Year
  Sex: Female
  Weight: 70.975 kg

DRUGS (7)
  1. BYETTA [Suspect]
     Indication: TYPE 2 DIABETES MELLITUS
     Dosage: 5 UG, 2/D
     Route: 065
     Dates: start: 20070226, end: 20070401
  2. BYETTA [Suspect]
     Dosage: 5 UG, UNKNOWN
     Route: 065
     Dates: start: 20070101, end: 20070801
  3. CADUET [Concomitant]
     Indication: HYPERTENSION
     Route: 048
     Dates: start: 20061027
  4. AVANDAMET [Concomitant]
     Indication: DIABETES MELLITUS
     Route: 048
     Dates: start: 20060525
  5. NEXIUM [Concomitant]
     Indication: GASTRITIS
     Route: 048
     Dates: start: 20061027
  6. ALPRAZOLAM [Concomitant]
     Indication: ANXIETY
     Route: 048
     Dates: start: 20060525
  7. LISINOPRIL HYDROCHLORTHIAZID [Concomitant]
     Indication: HYPERTENSION
     Route: 048
     Dates: start: 20061027

REACTIONS (4)
  - ABDOMINAL PAIN [None]
  - ILEUS PARALYTIC [None]
  - NAUSEA [None]
  - VOMITING [None]
